FAERS Safety Report 7386686-0 (Version None)
Quarter: 2011Q1

REPORT INFORMATION
  Report Type: 
  Country: None (occurrence: None)
  Receive Date: 20110323
  Receipt Date: 20110309
  Transmission Date: 20110831
  Serious: Yes (Other)
  Sender: FDA-Public Use
  Company Number: DSJ-2011-04886

PATIENT
  Age: 79 Year
  Sex: Male
  Weight: 65 kg

DRUGS (5)
  1. URIEF (SILODOSIN) (SILODOSIN) [Suspect]
     Dosage: 8 MG
     Dates: start: 20091204
  2. OLMETEC (OLMESARTAN MEDOXOMIL) (TABLET)(OLMESARTAN MEDOXOMIL) [Suspect]
     Indication: ESSENTIAL HYPERTENSION
     Dosage: 5,20,10  MG, PER ORAL
     Route: 048
     Dates: start: 20091218, end: 20100114
  3. OLMETEC (OLMESARTAN MEDOXOMIL) (TABLET)(OLMESARTAN MEDOXOMIL) [Suspect]
     Indication: ESSENTIAL HYPERTENSION
     Dosage: 5,20,10  MG, PER ORAL
     Route: 048
     Dates: start: 20100115, end: 20100720
  4. OLMETEC (OLMESARTAN MEDOXOMIL) (TABLET)(OLMESARTAN MEDOXOMIL) [Suspect]
     Indication: ESSENTIAL HYPERTENSION
     Dosage: 5,20,10  MG, PER ORAL
     Route: 048
     Dates: start: 20100721
  5. ATELEC (CILNIDIPINE) [Concomitant]

REACTIONS (2)
  - DIZZINESS POSTURAL [None]
  - ORTHOSTATIC HYPOTENSION [None]
